FAERS Safety Report 12659202 (Version 1)
Quarter: 2016Q3

REPORT INFORMATION
  Report Type: Spontaneous
  Country: US (occurrence: US)
  Receive Date: 20160817
  Receipt Date: 20160817
  Transmission Date: 20161109
  Serious: No
  Sender: FDA-Public Use
  Company Number: US-GLAXOSMITHKLINE-CHPA2016US003888

PATIENT
  Age: 88 Year
  Sex: Male

DRUGS (1)
  1. VOLTAREN (DICLOFENAC DIETHYLAMMONIUM SALT) GEL [Suspect]
     Active Substance: DICLOFENAC DIETHYLAMINE
     Indication: ARTHRALGIA
     Dosage: 2 G, BID
     Route: 061
     Dates: start: 20160315, end: 20160322

REACTIONS (6)
  - Application site inflammation [Recovering/Resolving]
  - Application site exfoliation [Recovering/Resolving]
  - Application site pruritus [Recovering/Resolving]
  - Application site pain [Recovering/Resolving]
  - Inappropriate schedule of drug administration [Unknown]
  - Application site irritation [Recovering/Resolving]

NARRATIVE: CASE EVENT DATE: 20160315
